FAERS Safety Report 17716023 (Version 1)
Quarter: 2020Q2

REPORT INFORMATION
  Report Type: Report from Study
  Country: None (occurrence: BR)
  Receive Date: 20200428
  Receipt Date: 20200428
  Transmission Date: 20200714
  Serious: Yes (Other)
  Sender: FDA-Public Use
  Company Number: BR-ABBVIE-20K-020-3379242-00

PATIENT
  Age: 66 Year
  Sex: Female

DRUGS (1)
  1. HUMIRA [Suspect]
     Active Substance: ADALIMUMAB
     Indication: PSORIATIC ARTHROPATHY
     Route: 058
     Dates: start: 20161124

REACTIONS (5)
  - Joint arthroplasty [Unknown]
  - Pain [Unknown]
  - Malaise [Unknown]
  - Knee arthroplasty [Unknown]
  - Inflammation [Unknown]

NARRATIVE: CASE EVENT DATE: 2020
